FAERS Safety Report 13385035 (Version 1)
Quarter: 2017Q1

REPORT INFORMATION
  Report Type: Spontaneous
  Country: US (occurrence: US)
  Receive Date: 20170330
  Receipt Date: 20170330
  Transmission Date: 20170429
  Serious: No
  Sender: FDA-Public Use
  Company Number: None

PATIENT
  Age: 4 Year
  Sex: Female
  Weight: 18 kg

DRUGS (1)
  1. TAMIFLU [Suspect]
     Active Substance: OSELTAMIVIR PHOSPHATE
     Dosage: ?          QUANTITY:7.5 ML;?
     Route: 048
     Dates: start: 20170329, end: 20170329

REACTIONS (4)
  - Hallucination [None]
  - Screaming [None]
  - Sleep disorder [None]
  - Crying [None]

NARRATIVE: CASE EVENT DATE: 20170330
